FAERS Safety Report 5724781-X (Version None)
Quarter: 2008Q2

REPORT INFORMATION
  Report Type: 
  Country: None (occurrence: None)
  Receive Date: 20080501
  Receipt Date: 20080501
  Transmission Date: 20081010
  Serious: Yes (Hospitalization, Other)
  Sender: FDA-Public Use
  Company Number: None

PATIENT
  Age: 60 Year
  Sex: Female
  Weight: 53.5244 kg

DRUGS (1)
  1. HEPARIN [Suspect]
     Indication: PULMONARY EMBOLISM
     Dosage: GIVEN FOR ABOUT 24 HOURS
     Dates: start: 20080217, end: 20080218

REACTIONS (10)
  - ACIDOSIS [None]
  - BLADDER NEOPLASM [None]
  - COLON CANCER [None]
  - HEART RATE INCREASED [None]
  - KIDNEY INFECTION [None]
  - OEDEMA [None]
  - PULMONARY EMBOLISM [None]
  - RESPIRATORY RATE INCREASED [None]
  - URINARY BLADDER HAEMORRHAGE [None]
  - VAGINAL HAEMORRHAGE [None]
